FAERS Safety Report 14982881 (Version 1)
Quarter: 2018Q2

REPORT INFORMATION
  Report Type: Spontaneous
  Country: US (occurrence: US)
  Receive Date: 20180607
  Receipt Date: 20180607
  Transmission Date: 20180711
  Serious: No
  Sender: FDA-Public Use
  Company Number: US-WEST-WARD PHARMACEUTICALS CORP.-US-H14001-18-01600

PATIENT
  Age: 62 Year
  Sex: Male
  Weight: 61.22 kg

DRUGS (1)
  1. FLUTICASONE. [Suspect]
     Active Substance: FLUTICASONE
     Indication: NASAL CONGESTION
     Dosage: 100 MCG IN EACH NOSTRIL
     Route: 045
     Dates: start: 20170511, end: 20170711

REACTIONS (4)
  - Nasal discomfort [Recovering/Resolving]
  - Hot flush [Recovering/Resolving]
  - Oral discomfort [Recovering/Resolving]
  - Chills [Recovering/Resolving]

NARRATIVE: CASE EVENT DATE: 2017
